FAERS Safety Report 8176909-2 (Version None)
Quarter: 2012Q1

REPORT INFORMATION
  Report Type: 
  Country: None (occurrence: None)
  Receive Date: 20120301
  Receipt Date: 20120216
  Transmission Date: 20120608
  Serious: Yes (Hospitalization, Disabling, Other)
  Sender: FDA-Public Use
  Company Number: GB-MYLANLABS-2012S1003581

PATIENT
  Age: 76 Year
  Sex: Male
  Weight: 80 kg

DRUGS (5)
  1. ENOXAPARIN SODIUM [Concomitant]
     Indication: PRODUCT USED FOR UNKNOWN INDICATION
     Route: 058
     Dates: start: 20120103
  2. EPILIM CHRONO /00228502/ [Concomitant]
  3. CIPROFLOXACIN [Suspect]
     Indication: CHOLANGITIS
     Route: 048
     Dates: start: 20111001, end: 20111101
  4. EPILIM CHRONO /00228502/ [Concomitant]
     Indication: EPILEPSY
     Route: 048
  5. LEVETIRACETAM [Concomitant]
     Indication: EPILEPSY
     Route: 048

REACTIONS (3)
  - TENDONITIS [None]
  - ERYTHEMA [None]
  - OEDEMA PERIPHERAL [None]
